FAERS Safety Report 4509010-7 (Version None)
Quarter: 2004Q4

REPORT INFORMATION
  Report Type: 
  Country: None (occurrence: None)
  Receive Date: 20041122
  Receipt Date: 20041122
  Transmission Date: 20050328
  Serious: Yes (Hospitalization)
  Sender: FDA-Public Use
  Company Number: None

PATIENT
  Age: 24 Year
  Sex: Male

DRUGS (7)
  1. HALOPERIDOL [Suspect]
     Indication: HALLUCINATION
     Dosage: SEE B5
  2. HALOPERIDOL [Suspect]
     Indication: PARANOIA
     Dosage: SEE B5
  3. RISPERDAL [Concomitant]
  4. ZYPREXA [Concomitant]
  5. BENZTROPINE MESYLATE [Concomitant]
  6. VALPROIC ACID [Concomitant]
  7. ARICEPT [Concomitant]

REACTIONS (7)
  - AUTONOMIC NERVOUS SYSTEM IMBALANCE [None]
  - CONFUSIONAL STATE [None]
  - CREATINE PHOSPHOKINASE DECREASED [None]
  - DEPRESSED LEVEL OF CONSCIOUSNESS [None]
  - FATIGUE [None]
  - MUSCLE RIGIDITY [None]
  - MYALGIA [None]
